FAERS Safety Report 14243884 (Version 4)
Quarter: 2018Q1

REPORT INFORMATION
  Report Type: Report from Study
  Country: AU (occurrence: AU)
  Receive Date: 20171201
  Receipt Date: 20180118
  Transmission Date: 20180508
  Serious: Yes (Death, Other)
  Sender: FDA-Public Use
  Company Number: AU-AMGEN-AUSSP2017178900

PATIENT
  Age: 86 Year
  Sex: Female

DRUGS (1)
  1. PROLIA [Suspect]
     Active Substance: DENOSUMAB
     Indication: OSTEOPOROSIS
     Dosage: UNK
     Route: 065

REACTIONS (7)
  - Brain neoplasm [Fatal]
  - Malignant neoplasm progression [Fatal]
  - Feeling abnormal [Fatal]
  - Bone cancer [Fatal]
  - Lung neoplasm malignant [Fatal]
  - Pain in extremity [Fatal]
  - Metastases to kidney [Fatal]

NARRATIVE: CASE EVENT DATE: 20170704
